FAERS Safety Report 6437942-1 (Version None)
Quarter: 2009Q4

REPORT INFORMATION
  Report Type: 
  Country: None (occurrence: None)
  Receive Date: 20091109
  Receipt Date: 20091026
  Transmission Date: 20100525
  Serious: Yes (Hospitalization, Other)
  Sender: FDA-Public Use
  Company Number: 2009AP0004308

PATIENT
  Age: 47 Year
  Sex: Female

DRUGS (8)
  1. SERTRALINE HYDROCHLORIDE [Suspect]
     Indication: DEPRESSION
     Dosage: PO
     Route: 048
  2. CLOZARIL [Suspect]
     Indication: SCHIZOPHRENIA
     Dosage: 150 MG; BID PO, 150 MG; TAB; PO; BID
     Route: 048
     Dates: start: 20080909, end: 20081005
  3. CLONAZEPAM [Concomitant]
  4. DIVALPROEX SODIUM [Concomitant]
  5. LAMOTRIGINE [Concomitant]
  6. QUETIAPINE FUMARATE [Concomitant]
  7. FLUTICASONE PROPIONATE [Concomitant]
  8. SALMETEROL XINAFOATE (SALMETEROL XINAFOATE) [Concomitant]

REACTIONS (6)
  - BODY TEMPERATURE INCREASED [None]
  - CARDIOMYOPATHY [None]
  - LOWER RESPIRATORY TRACT INFECTION [None]
  - OXYGEN SATURATION DECREASED [None]
  - TACHYCARDIA [None]
  - TACHYPNOEA [None]
